FAERS Safety Report 16009385 (Version 1)
Quarter: 2019Q1

REPORT INFORMATION
  Report Type: Report from Study
  Country: None (occurrence: US)
  Receive Date: 20190226
  Receipt Date: 20190226
  Transmission Date: 20190418
  Serious: Yes (Other)
  Sender: FDA-Public Use
  Company Number: US-ABBVIE-19K-163-2674256-00

PATIENT
  Age: 69 Year
  Sex: Female

DRUGS (1)
  1. HUMIRA [Suspect]
     Active Substance: ADALIMUMAB
     Indication: CROHN^S DISEASE
     Route: 058

REACTIONS (6)
  - Gastrointestinal haemorrhage [Unknown]
  - Memory impairment [Unknown]
  - Loss of consciousness [Unknown]
  - Fall [Unknown]
  - Hip fracture [Unknown]
  - Constipation [Unknown]

NARRATIVE: CASE EVENT DATE: 2017
